FAERS Safety Report 10733628 (Version 1)
Quarter: 2015Q1

REPORT INFORMATION
  Report Type: Spontaneous
  Country: US (occurrence: US)
  Receive Date: 20150123
  Receipt Date: 20150123
  Transmission Date: 20150721
  Serious: No
  Sender: FDA-Public Use
  Company Number: US-TARO-2014P1003567

PATIENT
  Age: 50 Year
  Sex: Female
  Weight: 56.7 kg

DRUGS (1)
  1. CLOTRIMAZOLE VAGINAL CREAM USP 1% 7 DAY [Suspect]
     Active Substance: CLOTRIMAZOLE
     Indication: FUNGAL INFECTION
     Dosage: 1 APPLICATOR,HS
     Route: 067
     Dates: start: 201403, end: 201403

REACTIONS (2)
  - Vaginal infection [Recovered/Resolved]
  - Drug ineffective [Recovered/Resolved]

NARRATIVE: CASE EVENT DATE: 201403
